FAERS Safety Report 9322332 (Version 1)
Quarter: 2013Q2

REPORT INFORMATION
  Report Type: Report from Study
  Country: BR (occurrence: BR)
  Receive Date: 20130531
  Receipt Date: 20130531
  Transmission Date: 20140414
  Serious: Yes (Hospitalization, Other)
  Sender: FDA-Public Use
  Company Number: BR-ABBOTT-13P-020-1096375-00

PATIENT
  Sex: Female
  Weight: 56 kg

DRUGS (5)
  1. HUMIRA [Suspect]
     Indication: RHEUMATOID ARTHRITIS
     Route: 058
     Dates: start: 20110126, end: 201210
  2. HUMIRA [Suspect]
     Route: 058
     Dates: start: 201302
  3. ARAVA [Concomitant]
     Indication: ARTHRITIS
     Route: 048
     Dates: start: 2009
  4. ATENOLOL [Concomitant]
     Indication: HYPERTENSION
     Route: 048
     Dates: start: 2009
  5. OMEPRAZOLE [Concomitant]
     Indication: GASTRIC DISORDER
     Route: 048
     Dates: start: 201205

REACTIONS (2)
  - Device dislocation [Recovered/Resolved]
  - Weight decreased [Unknown]
